FAERS Safety Report 4556096-X (Version None)
Quarter: 2005Q1

REPORT INFORMATION
  Report Type: 
  Country: None (occurrence: None)
  Receive Date: 20050119
  Receipt Date: 20050110
  Transmission Date: 20050727
  Serious: Yes (Death)
  Sender: FDA-Public Use
  Company Number: US-JNJFOC-20041101133

PATIENT
  Sex: Male

DRUGS (3)
  1. REMICADE [Suspect]
     Route: 042
  2. METHOTREXATE [Concomitant]
  3. NSAIDS [Concomitant]

REACTIONS (3)
  - COMA [None]
  - DEHYDRATION [None]
  - PNEUMONIA [None]
